FAERS Safety Report 7131021-6 (Version None)
Quarter: 2010Q4

REPORT INFORMATION
  Report Type: 
  Country: None (occurrence: None)
  Receive Date: 20101201
  Receipt Date: 20101124
  Transmission Date: 20110411
  Serious: Yes (Hospitalization)
  Sender: FDA-Public Use
  Company Number: B0683866A

PATIENT
  Sex: Female
  Weight: 65 kg

DRUGS (5)
  1. PAZOPANIB [Suspect]
     Indication: NEOPLASM
     Dosage: 400MG PER DAY
     Route: 048
     Dates: start: 20100724
  2. EPIRUBICIN [Suspect]
     Indication: NEOPLASM
     Route: 042
     Dates: start: 20100723
  3. ASPIRIN [Concomitant]
     Indication: CAROTID ARTERY STENOSIS
     Dosage: 100MG PER DAY
     Route: 048
  4. UNKNOWN MEDICATION [Concomitant]
     Indication: LIPIDS ABNORMAL
     Route: 048
  5. BISOPROLOL FUMARATE [Concomitant]
     Dosage: 1.25MG PER DAY
     Route: 048

REACTIONS (2)
  - DEEP VEIN THROMBOSIS [None]
  - PULMONARY EMBOLISM [None]
